FAERS Safety Report 8582661-9 (Version None)
Quarter: 2012Q3

REPORT INFORMATION
  Report Type: 
  Country: None (occurrence: None)
  Receive Date: 20120809
  Receipt Date: 20120803
  Transmission Date: 20120928
  Serious: Yes (Other)
  Sender: FDA-Public Use
  Company Number: FR-ROCHE-1097587

PATIENT
  Sex: Female
  Weight: 92 kg

DRUGS (4)
  1. CATAPRES [Concomitant]
     Indication: HYPERTENSION
     Dates: start: 20090101
  2. XANAX [Concomitant]
     Dates: start: 20090101
  3. VISMODEGIB [Suspect]
     Indication: HEAD AND NECK CANCER
     Dosage: DATE OF LAST DOSE PRIOR TO SAE-02/AUG/2012.
     Route: 048
     Dates: start: 20120706
  4. NEBIVOLOL [Concomitant]
     Indication: HYPERTENSION
     Dates: start: 20090101

REACTIONS (1)
  - HEPATIC ENZYME INCREASED [None]
